FAERS Safety Report 8811069 (Version 1)
Quarter: 2012Q4

REPORT INFORMATION
  Report Type: 
  Country: BR (occurrence: BR)
  Receive Date: 20120927
  Receipt Date: 20120927
  Transmission Date: 20130627
  Serious: Yes (Hospitalization, Other)
  Sender: FDA-Public Use
  Company Number: PHHY2012BR082964

PATIENT
  Sex: Female
  Weight: 1.2 kg

DRUGS (3)
  1. DIOVAN TRIPLE [Suspect]
     Indication: BLOOD PRESSURE
     Dosage: Maternal dose 1 DF (160 mg vals, 10 mg amlo, 12.5 mg hydr)
     Route: 064
  2. DIOVAN TRIPLE [Suspect]
     Dosage: Maternal dose, 1 DF (160 mg vals, 05 mg amlo, 12.5 mg hydr), daily
     Route: 064
  3. DIOVAN TRIPLE [Suspect]
     Dosage: Maternal dose, 1 DF (160 mg vals, 10 mg amlo, 12.5 mg hydr), daily
     Route: 064

REACTIONS (4)
  - Premature baby [Unknown]
  - Low birth weight baby [Unknown]
  - Apgar score low [Unknown]
  - Foetal exposure during pregnancy [Unknown]
